FAERS Safety Report 7120700-2 (Version None)
Quarter: 2010Q4

REPORT INFORMATION
  Report Type: 
  Country: None (occurrence: None)
  Receive Date: 20101124
  Receipt Date: 20101117
  Transmission Date: 20110411
  Serious: Yes (Other)
  Sender: FDA-Public Use
  Company Number: US-BAYER-201041812NA

PATIENT
  Age: 43 Year
  Sex: Female

DRUGS (3)
  1. MIRENA [Suspect]
     Indication: CONTRACEPTION
     Route: 015
     Dates: start: 20050701
  2. OTHER BIRTH CONTROL [Concomitant]
     Indication: CONTRACEPTION
  3. MEDICATION [Concomitant]
     Indication: UTERINE CERVIX DILATION PROCEDURE

REACTIONS (2)
  - DEVICE DISLOCATION [None]
  - PROCEDURAL PAIN [None]
